FAERS Safety Report 8592165-5 (Version None)
Quarter: 2012Q3

REPORT INFORMATION
  Report Type: 
  Country: None (occurrence: None)
  Receive Date: 20120814
  Receipt Date: 20120802
  Transmission Date: 20120928
  Serious: Yes (Other)
  Sender: FDA-Public Use
  Company Number: US-ELI_LILLY_AND_COMPANY-US201208001609

PATIENT
  Age: 47 Year
  Sex: Female

DRUGS (1)
  1. CYMBALTA [Suspect]
     Indication: DEPRESSION
     Dosage: 60 MG, QD
     Dates: start: 20020101, end: 20120717

REACTIONS (23)
  - SEROTONIN SYNDROME [None]
  - DYSPHAGIA [None]
  - THINKING ABNORMAL [None]
  - VOMITING [None]
  - DIZZINESS [None]
  - COGNITIVE DISORDER [None]
  - MEMORY IMPAIRMENT [None]
  - AGEUSIA [None]
  - NAUSEA [None]
  - DRUG WITHDRAWAL SYNDROME [None]
  - TRANSIENT ISCHAEMIC ATTACK [None]
  - SPEECH DISORDER [None]
  - LACRIMATION DECREASED [None]
  - NIGHTMARE [None]
  - NEUROPATHY PERIPHERAL [None]
  - VIITH NERVE PARALYSIS [None]
  - MENTAL IMPAIRMENT [None]
  - TREMOR [None]
  - BLOOD PRESSURE INCREASED [None]
  - NIGHT SWEATS [None]
  - BRAIN INJURY [None]
  - MUSCLE SPASMS [None]
  - VERTIGO [None]
